FAERS Safety Report 15761881 (Version 1)
Quarter: 2018Q4

REPORT INFORMATION
  Report Type: Spontaneous
  Country: US (occurrence: US)
  Receive Date: 20181226
  Receipt Date: 20181226
  Transmission Date: 20190205
  Serious: No
  Sender: FDA-Public Use
  Company Number: PHEH2018US053465

PATIENT
  Sex: Female

DRUGS (2)
  1. METAXALONE SANDOZ [Suspect]
     Active Substance: METAXALONE
     Indication: PRODUCT USED FOR UNKNOWN INDICATION
     Dosage: 1 DF, UNK
     Route: 065
  2. METAXALONE SANDOZ [Suspect]
     Active Substance: METAXALONE
     Dosage: 0.5 DF, UNK
     Route: 065

REACTIONS (2)
  - Drug ineffective [Unknown]
  - Muscle spasms [Unknown]
